FAERS Safety Report 8157092-6 (Version None)
Quarter: 2012Q1

REPORT INFORMATION
  Report Type: 
  Country: None (occurrence: None)
  Receive Date: 20120222
  Receipt Date: 20120221
  Transmission Date: 20120608
  Serious: Yes (Death, Hospitalization, Other)
  Sender: FDA-Public Use
  Company Number: JP-ABBOTT-11P-087-0880587-00

PATIENT
  Sex: Male
  Weight: 38 kg

DRUGS (9)
  1. LANSOPRAZOLE [Concomitant]
     Indication: GASTROOESOPHAGEAL REFLUX DISEASE
     Route: 048
     Dates: start: 20110802
  2. CELECOXIB [Concomitant]
     Indication: RHEUMATOID ARTHRITIS
     Route: 048
     Dates: start: 20110802
  3. RHEUMATREX [Suspect]
     Indication: RHEUMATOID ARTHRITIS
     Dosage: 4MG 3IN1W. 2 TABS AT1ST,1 TAB AT 2ND+3RD
     Route: 048
     Dates: start: 20110802
  4. NICORANDIL [Concomitant]
     Indication: ANGINA PECTORIS
     Route: 048
     Dates: start: 20110809
  5. ROSUVASTATIN CALCIUM [Concomitant]
     Indication: HYPERCHOLESTEROLAEMIA
     Route: 048
     Dates: start: 20110813
  6. HUMIRA [Suspect]
     Indication: RHEUMATOID ARTHRITIS
     Route: 058
     Dates: start: 20110907, end: 20111115
  7. BUCILLAMINE [Concomitant]
     Indication: RHEUMATOID ARTHRITIS
     Route: 048
     Dates: start: 20110802
  8. FOLIC ACID [Concomitant]
     Indication: RHEUMATOID ARTHRITIS
     Route: 048
     Dates: start: 20110802
  9. ISOSORBIDE DINITRATE [Concomitant]
     Indication: MYOCARDIAL INFARCTION
     Route: 048
     Dates: start: 20110809

REACTIONS (10)
  - GENERAL PHYSICAL CONDITION ABNORMAL [None]
  - PALLOR [None]
  - PNEUMOCYSTIS JIROVECI PNEUMONIA [None]
  - NAUSEA [None]
  - IMMOBILE [None]
  - INTERSTITIAL LUNG DISEASE [None]
  - VENTRICULAR FIBRILLATION [None]
  - RESPIRATORY ARREST [None]
  - CARDIAC ARREST [None]
  - RHEUMATOID ARTHRITIS [None]
